FAERS Safety Report 10047671 (Version 1)
Quarter: 2014Q1

REPORT INFORMATION
  Report Type: Spontaneous
  Country: US (occurrence: US)
  Receive Date: 20140331
  Receipt Date: 20140331
  Transmission Date: 20141002
  Serious: Yes (Other)
  Sender: FDA-Public Use
  Company Number: US-PFIZER INC-2014090379

PATIENT
  Age: 62 Year
  Sex: Female
  Weight: 80.3 kg

DRUGS (3)
  1. ZOLOFT [Suspect]
     Indication: PANIC DISORDER
     Dosage: 150 MG, DAILY BEFORE GOING TO BED
     Dates: start: 199912
  2. SYNTHROID [Concomitant]
     Indication: GOITRE
     Dosage: 50 UG, DAILY
  3. LYRICA [Concomitant]
     Indication: FIBROMYALGIA
     Dosage: 75 MG, DAILY

REACTIONS (2)
  - Hypogammaglobulinaemia [Unknown]
  - Insomnia [Unknown]
